FAERS Safety Report 9112495 (Version 3)
Quarter: 2013Q1

REPORT INFORMATION
  Report Type: Report from Study
  Country: CA (occurrence: CA)
  Receive Date: 20130211
  Receipt Date: 20130329
  Transmission Date: 20140127
  Serious: Yes (Hospitalization, Other)
  Sender: FDA-Public Use
  Company Number: CA-ABBOTT-13P-028-1047861-00

PATIENT
  Sex: Male
  Weight: 95 kg

DRUGS (2)
  1. LUPRON DEPOT [Suspect]
     Indication: PROSTATE CANCER
     Dosage: 3 MONTH DEPOT
     Route: 030
     Dates: end: 201212
  2. LUPRON DEPOT [Suspect]
     Indication: HORMONE THERAPY

REACTIONS (1)
  - Dementia Alzheimer^s type [Unknown]
